FAERS Safety Report 8587395-2 (Version None)
Quarter: 2012Q3

REPORT INFORMATION
  Report Type: 
  Country: None (occurrence: None)
  Receive Date: 20120810
  Receipt Date: 20120126
  Transmission Date: 20120928
  Serious: No
  Sender: FDA-Public Use
  Company Number: US-ASTRAZENECA-2012SE05500

PATIENT
  Age: 60 Year
  Sex: Female
  Weight: 43.1 kg

DRUGS (1)
  1. ARIMIDEX [Suspect]
     Indication: BREAST CANCER STAGE I
     Route: 048
     Dates: start: 20070101, end: 20111101

REACTIONS (2)
  - MUSCULAR WEAKNESS [None]
  - ARTHRITIS [None]
